FAERS Safety Report 23150397 (Version 1)
Quarter: 2023Q4

REPORT INFORMATION
  Report Type: Spontaneous
  Country: US (occurrence: None)
  Receive Date: 20231105
  Receipt Date: 20231105
  Transmission Date: 20240110
  Serious: Yes (Other)
  Sender: FDA-Public Use
  Company Number: None

PATIENT
  Age: 61 Year
  Sex: Female
  Weight: 63.9 kg

DRUGS (4)
  1. DICLOFENAC SODIUM [Suspect]
     Active Substance: DICLOFENAC\DICLOFENAC SODIUM
     Indication: Arthralgia
     Dosage: OTHER QUANTITY : 1 TOPICAL GEL;?FREQUENCY : TWICE A DAY;?
     Route: 061
     Dates: start: 20231029, end: 20231103
  2. METOPROLOL TARTRATE [Concomitant]
     Active Substance: METOPROLOL TARTRATE
  3. PRALUENT [Concomitant]
     Active Substance: ALIROCUMAB
  4. VITAMINS [Concomitant]
     Active Substance: VITAMINS

REACTIONS (3)
  - Abdominal pain upper [None]
  - Posture abnormal [None]
  - Therapy cessation [None]

NARRATIVE: CASE EVENT DATE: 20231029
